FAERS Safety Report 8011567-9 (Version None)
Quarter: 2011Q4

REPORT INFORMATION
  Report Type: 
  Country: None (occurrence: None)
  Receive Date: 20111228
  Receipt Date: 20111220
  Transmission Date: 20120403
  Serious: No
  Sender: FDA-Public Use
  Company Number: US-PFIZER INC-2011277244

PATIENT
  Sex: Female

DRUGS (3)
  1. DIOVAN [Suspect]
     Dosage: 160 MG, UNK
  2. LIPITOR [Suspect]
     Dosage: 10 MG, UNK
  3. LIPITOR [Suspect]
     Dosage: 20 MG, UNK

REACTIONS (5)
  - PRURITUS [None]
  - WEIGHT DECREASED [None]
  - DIARRHOEA [None]
  - NASAL CONGESTION [None]
  - ERYTHEMA [None]
